APPROVED DRUG PRODUCT: CEPHRADINE
Active Ingredient: CEPHRADINE
Strength: 500MG
Dosage Form/Route: CAPSULE;ORAL
Application: A062683 | Product #002
Applicant: TEVA PHARMACEUTICALS USA INC
Approved: Jan 9, 1987 | RLD: No | RS: No | Type: DISCN